FAERS Safety Report 6418092-7 (Version None)
Quarter: 2009Q4

REPORT INFORMATION
  Report Type: 
  Country: None (occurrence: None)
  Receive Date: 20091026
  Receipt Date: 20091013
  Transmission Date: 20100525
  Serious: Yes (Other)
  Sender: FDA-Public Use
  Company Number: ADR38332009

PATIENT
  Age: 48 Year
  Sex: Male

DRUGS (1)
  1. SIMVASTATIN [Suspect]

REACTIONS (1)
  - SENSATION OF FOREIGN BODY [None]
